FAERS Safety Report 18267635 (Version 1)
Quarter: 2020Q3

REPORT INFORMATION
  Report Type: Spontaneous
  Country: JP (occurrence: JP)
  Receive Date: 20200915
  Receipt Date: 20200915
  Transmission Date: 20201103
  Serious: Yes (Hospitalization, Other)
  Sender: FDA-Public Use
  Company Number: JP-SA-2020SA209527

PATIENT

DRUGS (14)
  1. MYSLEE [Suspect]
     Active Substance: ZOLPIDEM TARTRATE
     Dosage: 10 MG, QD (10 MG/DAY)
     Route: 048
     Dates: start: 202006
  2. PARMODIA [Concomitant]
     Active Substance: PEMAFIBRATE
     Dosage: UNK
     Route: 048
  3. MYSLEE [Suspect]
     Active Substance: ZOLPIDEM TARTRATE
     Indication: INSOMNIA
     Dosage: 5 MG, QD
     Route: 048
     Dates: start: 20120912
  4. OLMETEC [Concomitant]
     Active Substance: OLMESARTAN MEDOXOMIL
     Dosage: UNK
     Route: 048
  5. MYSLEE [Suspect]
     Active Substance: ZOLPIDEM TARTRATE
     Dosage: UNK UNK, BIW (MORE THAN 10 MG/DAY)
     Route: 048
  6. GLIMEPIRIDE. [Concomitant]
     Active Substance: GLIMEPIRIDE
     Dosage: UNK
     Route: 048
  7. MOHRUS [Concomitant]
     Active Substance: KETOPROFEN
     Dosage: UNK (EXTRA FORMULATION)
  8. MYSLEE [Suspect]
     Active Substance: ZOLPIDEM TARTRATE
     Dosage: UNK UNK, QW (MORE THAN 10 MG/DAY)
     Route: 048
  9. MYSLEE [Suspect]
     Active Substance: ZOLPIDEM TARTRATE
     Dosage: 10 MG, QD (10 MG/DAY)
     Route: 048
     Dates: start: 20160903
  10. MEMARY [Concomitant]
     Active Substance: MEMANTINE HYDROCHLORIDE
     Dosage: UNK
  11. UBRETID [Concomitant]
     Active Substance: DISTIGMINE BROMIDE
     Dosage: UNK
     Route: 048
  12. EQUA [Concomitant]
     Active Substance: VILDAGLIPTIN
     Dosage: UNK
     Route: 048
  13. BEOVA [Concomitant]
     Dosage: UNK
     Route: 048
  14. EBRANTIL [URAPIDIL] [Concomitant]
     Active Substance: URAPIDIL
     Dosage: UNK
     Route: 048

REACTIONS (4)
  - Intentional overdose [Unknown]
  - Insomnia [Recovered/Resolved]
  - Middle insomnia [Recovered/Resolved]
  - Diabetes mellitus [Recovered/Resolved]
